FAERS Safety Report 15667874 (Version 1)
Quarter: 2018Q4

REPORT INFORMATION
  Report Type: Report from Study
  Country: US (occurrence: US)
  Receive Date: 20181128
  Receipt Date: 20181128
  Transmission Date: 20190205
  Serious: Yes (Other)
  Sender: FDA-Public Use
  Company Number: US-BEH-2018097185

PATIENT
  Age: 53 Year
  Sex: Female

DRUGS (1)
  1. HAEGARDA [Suspect]
     Active Substance: HUMAN C1-ESTERASE INHIBITOR
     Indication: HEREDITARY ANGIOEDEMA
     Dosage: UNK
     Route: 058
     Dates: start: 201808

REACTIONS (7)
  - Presyncope [Unknown]
  - Nonspecific reaction [Unknown]
  - Nasal inflammation [Unknown]
  - Feeling abnormal [Unknown]
  - Hereditary angioedema [Unknown]
  - Rhinorrhoea [Unknown]
  - Nausea [Unknown]
